FAERS Safety Report 6019593-6 (Version None)
Quarter: 2008Q4

REPORT INFORMATION
  Report Type: 
  Country: None (occurrence: None)
  Receive Date: 20081224
  Receipt Date: 20081221
  Transmission Date: 20090506
  Serious: Yes (Death, Other)
  Sender: FDA-Public Use
  Company Number: PHHY2008CA32797

PATIENT
  Sex: Female

DRUGS (2)
  1. CO-DIOVAN T32564+ [Suspect]
     Indication: HYPERTENSION
     Dosage: 80 MG VALSARTAN/12.5 MG HYDROCHLOROTHIAZIDE
     Route: 048
     Dates: start: 20081103, end: 20081215
  2. COUMADIN [Concomitant]

REACTIONS (3)
  - COLON NEOPLASM [None]
  - GASTROINTESTINAL HAEMORRHAGE [None]
  - PULMONARY EMBOLISM [None]
